FAERS Safety Report 16582466 (Version 1)
Quarter: 2019Q3

REPORT INFORMATION
  Report Type: Spontaneous
  Country: US (occurrence: US)
  Receive Date: 20190717
  Receipt Date: 20190717
  Transmission Date: 20191004
  Serious: No
  Sender: FDA-Public Use
  Company Number: US-APOTEX-2019AP017036

PATIENT
  Age: 90 Year
  Sex: Female

DRUGS (1)
  1. DILTIAZEM HYDROCHLORIDE. [Suspect]
     Active Substance: DILTIAZEM HYDROCHLORIDE
     Indication: PRODUCT USED FOR UNKNOWN INDICATION
     Dosage: 240 MG, Q.AM (EMPTY STOMACH)
     Route: 065

REACTIONS (6)
  - Condition aggravated [Unknown]
  - Abdominal distension [Recovered/Resolved]
  - Ear discomfort [Unknown]
  - Malaise [Unknown]
  - Pain [Unknown]
  - Headache [Unknown]
